FAERS Safety Report 11212326 (Version 1)
Quarter: 2015Q2

REPORT INFORMATION
  Report Type: Spontaneous
  Country: US (occurrence: US)
  Receive Date: 20150623
  Receipt Date: 20150623
  Transmission Date: 20150821
  Serious: Yes (Hospitalization, Other)
  Sender: FDA-Public Use
  Company Number: US-PFIZER INC-2015206983

PATIENT
  Sex: Female

DRUGS (1)
  1. PROTONIX [Suspect]
     Active Substance: PANTOPRAZOLE SODIUM
     Indication: GASTROOESOPHAGEAL REFLUX DISEASE
     Dosage: UNK
     Dates: start: 201302

REACTIONS (14)
  - Laryngeal disorder [Unknown]
  - Dizziness [Unknown]
  - Pneumonia [Unknown]
  - Abdominal pain [Unknown]
  - Vomiting [Unknown]
  - Spondylitis [Unknown]
  - Nausea [Unknown]
  - Headache [Unknown]
  - Myalgia [Unknown]
  - Laryngeal injury [Unknown]
  - Flatulence [Unknown]
  - Drug ineffective [Unknown]
  - Muscle spasms [Unknown]
  - Dyskinesia [Unknown]
